FAERS Safety Report 10201156 (Version 5)
Quarter: 2014Q3

REPORT INFORMATION
  Report Type: Spontaneous
  Country: GB (occurrence: GB)
  Receive Date: 20140528
  Receipt Date: 20140708
  Transmission Date: 20150326
  Serious: Yes (Hospitalization, Other)
  Sender: FDA-Public Use
  Company Number: GB-BAYER-2014-063313

PATIENT
  Age: 80 Year
  Sex: Male
  Weight: 95.4 kg

DRUGS (5)
  1. MST CONTINUS [Concomitant]
     Active Substance: MORPHINE SULFATE
  2. AMLODIPINE [Concomitant]
     Active Substance: AMLODIPINE BESYLATE
  3. FINASTERIDE. [Concomitant]
     Active Substance: FINASTERIDE
  4. RAMIPRIL. [Concomitant]
     Active Substance: RAMIPRIL
  5. XOFIGO [Suspect]
     Active Substance: RADIUM RA-223 DICHLORIDE
     Indication: PROSTATE CANCER METASTATIC
     Dosage: UNK
     Dates: start: 20140327, end: 20140327

REACTIONS (9)
  - Renal failure acute [Recovered/Resolved]
  - Pancytopenia [Recovering/Resolving]
  - Malaise [Recovered/Resolved]
  - Diarrhoea [Unknown]
  - Urosepsis [Recovered/Resolved]
  - Haemoglobin abnormal [Recovered/Resolved]
  - Thrombocytopenia [Not Recovered/Not Resolved]
  - Atrial flutter [Unknown]
  - Atrial fibrillation [Recovering/Resolving]

NARRATIVE: CASE EVENT DATE: 20140410
